APPROVED DRUG PRODUCT: LEVO-DROMORAN
Active Ingredient: LEVORPHANOL TARTRATE
Strength: 2MG/ML
Dosage Form/Route: INJECTABLE;INJECTION
Application: N008719 | Product #001
Applicant: VALEANT PHARMACEUTICALS INTERNATIONAL
Approved: Dec 19, 1991 | RLD: No | RS: No | Type: DISCN